FAERS Safety Report 4698155-7 (Version None)
Quarter: 2005Q2

REPORT INFORMATION
  Report Type: 
  Country: None (occurrence: None)
  Receive Date: 20050623
  Receipt Date: 20050614
  Transmission Date: 20051028
  Serious: Yes (Other)
  Sender: FDA-Public Use
  Company Number: BR-GLAXOSMITHKLINE-A0563485A

PATIENT
  Age: 55 Year
  Sex: Male
  Weight: 80 kg

DRUGS (6)
  1. ZYBAN [Suspect]
     Indication: ANXIETY
     Dosage: 150MG SINGLE DOSE
     Route: 048
     Dates: start: 20050604, end: 20050604
  2. PSOREX [Concomitant]
     Route: 048
  3. TRIPTANOL [Concomitant]
     Route: 048
  4. ASPIRIN [Concomitant]
     Route: 048
  5. BUSCOPAN [Concomitant]
  6. LISADOR [Concomitant]

REACTIONS (3)
  - CONVULSION [None]
  - PALLOR [None]
  - SENSORY DISTURBANCE [None]
